FAERS Safety Report 6960553-6 (Version None)
Quarter: 2010Q3

REPORT INFORMATION
  Report Type: 
  Country: None (occurrence: None)
  Receive Date: 20100901
  Receipt Date: 20100823
  Transmission Date: 20110219
  Serious: Yes (Other)
  Sender: FDA-Public Use
  Company Number: DE-JNJFOC-20100705695

PATIENT
  Sex: Male
  Weight: 10.6 kg

DRUGS (9)
  1. TOPAMAX [Suspect]
     Indication: INFANTILE SPASMS
     Dosage: 37.5 MG - 0 - 25 MG
     Route: 048
  2. TOPAMAX [Suspect]
     Route: 048
  3. TOPAMAX [Suspect]
     Route: 048
  4. VALPROAT [Concomitant]
     Indication: PRODUCT USED FOR UNKNOWN INDICATION
     Route: 048
  5. SABRIL [Concomitant]
     Indication: INFANTILE SPASMS
     Route: 048
  6. VALPROATE SODIUM [Concomitant]
     Indication: INFANTILE SPASMS
     Route: 048
  7. MINIRIN [Concomitant]
     Route: 048
  8. HYDROCORTISON [Concomitant]
     Route: 048
  9. LEVOTHYROXINE SODIUM [Concomitant]
     Route: 048

REACTIONS (1)
  - AMMONIA INCREASED [None]
